FAERS Safety Report 11294215 (Version 1)
Quarter: 2015Q3

REPORT INFORMATION
  Report Type: Spontaneous
  Country: US (occurrence: US)
  Receive Date: 20150722
  Receipt Date: 20150722
  Transmission Date: 20151125
  Serious: No
  Sender: FDA-Public Use
  Company Number: US-ELI_LILLY_AND_COMPANY-US200802001828

PATIENT
  Age: 72 Year
  Sex: Female

DRUGS (2)
  1. FOSAMAX [Concomitant]
     Active Substance: ALENDRONATE SODIUM
  2. EVISTA [Suspect]
     Active Substance: RALOXIFENE HYDROCHLORIDE
     Indication: BONE DISORDER

REACTIONS (5)
  - Hyperhidrosis [Recovered/Resolved]
  - Muscle spasms [Recovered/Resolved]
  - Insomnia [Recovered/Resolved]
  - Peripheral swelling [Recovered/Resolved]
  - Feeling hot [Recovered/Resolved]
